FAERS Safety Report 9117824 (Version 1)
Quarter: 2013Q1

REPORT INFORMATION
  Report Type: Spontaneous
  Country: BR (occurrence: BR)
  Receive Date: 20130128
  Receipt Date: 20130128
  Transmission Date: 20140127
  Serious: Yes (Hospitalization, Other)
  Sender: FDA-Public Use
  Company Number: BR-ROXANE LABORATORIES, INC.-2012-BI-01148GD

PATIENT
  Age: 28 Year
  Sex: Male

DRUGS (4)
  1. PREDNISONE [Suspect]
     Indication: LEPROSY
     Dosage: 1 MG/KG
     Dates: start: 200105, end: 200308
  2. PREDNISONE [Suspect]
     Indication: NEURITIS
     Dosage: 80 MG
     Dates: start: 200308, end: 2007
  3. THALIDOMIDE [Suspect]
     Indication: LEPROSY
     Dates: start: 200205, end: 200308
  4. THALIDOMIDE [Suspect]
     Indication: NEURITIS
     Dosage: 300 MG
     Dates: start: 200308, end: 2007

REACTIONS (8)
  - Zygomycosis [Recovered/Resolved]
  - Inflammation [Recovered/Resolved]
  - Epidermal necrosis [Recovered/Resolved]
  - Vasculitis [Recovered/Resolved]
  - Chromoblastomycosis [Recovered/Resolved]
  - Lepromatous leprosy [Recovered/Resolved]
  - Skin necrosis [Recovered/Resolved]
  - Blood glucose increased [Unknown]
